FAERS Safety Report 6574226-5 (Version None)
Quarter: 2010Q1

REPORT INFORMATION
  Report Type: 
  Country: None (occurrence: None)
  Receive Date: 20100201
  Receipt Date: 20100118
  Transmission Date: 20100710
  Serious: Yes (Death)
  Sender: FDA-Public Use
  Company Number: 225610

PATIENT
  Age: 11 Year
  Sex: Male
  Weight: 37.5 kg

DRUGS (19)
  1. ETOPOSIDE [Suspect]
     Indication: ACUTE LYMPHOCYTIC LEUKAEMIA RECURRENT
     Dosage: 100 MG
     Dates: start: 20090105, end: 20090109
  2. CYCLOPHOSPHAMIDE [Suspect]
     Indication: ACUTE LYMPHOCYTIC LEUKAEMIA RECURRENT
     Dates: start: 20090105, end: 20090109
  3. CLOFARABINE [Suspect]
     Indication: ACUTE LYMPHOCYTIC LEUKAEMIA RECURRENT
     Dosage: 40 MG/M2 INTRAVENOUS
     Route: 042
     Dates: start: 20090105, end: 20090109
  4. DEXAMETHASONE [Concomitant]
  5. LACTULOSE [Concomitant]
  6. LOPERAMIDE [Concomitant]
  7. METOCLOPRAMIDE [Concomitant]
  8. OMEPRAZOLE [Concomitant]
  9. LORAZEPAM [Concomitant]
  10. BENZYDAMINE [Concomitant]
  11. CHLORHEXIDINE GLUCONATE [Concomitant]
  12. FLUCONAZOLE [Concomitant]
  13. MEROPENEM [Concomitant]
  14. METRONIDAZOLE [Concomitant]
  15. PARACETAMOL [Concomitant]
  16. RASBURICASE [Concomitant]
  17. TEICOPLANIN [Concomitant]
  18. VANCOMYCIN [Concomitant]
  19. VINCRISTINE [Concomitant]

REACTIONS (15)
  - ACUTE LYMPHOCYTIC LEUKAEMIA [None]
  - BACTERAEMIA [None]
  - CONVULSION [None]
  - CORONA VIRUS INFECTION [None]
  - ENTEROCOCCAL BACTERAEMIA [None]
  - HEADACHE [None]
  - HEPATITIS CHOLESTATIC [None]
  - HYPERTENSION [None]
  - ILEUS [None]
  - LOSS OF CONSCIOUSNESS [None]
  - MALIGNANT NEOPLASM PROGRESSION [None]
  - MUCOSAL INFLAMMATION [None]
  - NEUTROPENIC COLITIS [None]
  - RASH [None]
  - SEPSIS [None]
